FAERS Safety Report 8398737-5 (Version None)
Quarter: 2012Q2

REPORT INFORMATION
  Report Type: 
  Country: None (occurrence: None)
  Receive Date: 20120531
  Receipt Date: 20120524
  Transmission Date: 20120825
  Serious: Yes (Other)
  Sender: FDA-Public Use
  Company Number: PHHY2012FR022748

PATIENT
  Sex: Male

DRUGS (1)
  1. TASIGNA [Suspect]
     Indication: CHRONIC LYMPHOCYTIC LEUKAEMIA
     Dosage: UNK UKN, UNK
     Dates: start: 20101001, end: 20120326

REACTIONS (3)
  - NEOPLASM MALIGNANT [None]
  - SUPERFICIAL SPREADING MELANOMA STAGE UNSPECIFIED [None]
  - BASAL CELL CARCINOMA [None]
